FAERS Safety Report 10420795 (Version 1)
Quarter: 2014Q3

REPORT INFORMATION
  Report Type: Spontaneous
  Country: US (occurrence: None)
  Receive Date: 20140829
  Receipt Date: 20140829
  Transmission Date: 20150326
  Serious: Yes (Other)
  Sender: FDA-Public Use
  Company Number: None

PATIENT
  Age: 63 Year
  Sex: Male
  Weight: 71.67 kg

DRUGS (12)
  1. SOVALDI [Suspect]
     Active Substance: SOFOSBUVIR
     Indication: CHRONIC HEPATITIS C
     Dosage: 1 PILL QD ORAL
     Route: 048
     Dates: start: 20140814, end: 20140828
  2. PLAVIX [Concomitant]
     Active Substance: CLOPIDOGREL BISULFATE
  3. FUROSEMIDE. [Concomitant]
     Active Substance: FUROSEMIDE
  4. RIBAVIRIN. [Concomitant]
     Active Substance: RIBAVIRIN
  5. LOSARTIN [Concomitant]
     Active Substance: LOSARTAN
  6. SIMVASTATIN. [Concomitant]
     Active Substance: SIMVASTATIN
  7. TRAZODONE [Concomitant]
     Active Substance: TRAZODONE HYDROCHLORIDE
  8. MERTAZAPINE [Concomitant]
     Active Substance: MIRTAZAPINE
  9. ISOSORBIDE [Concomitant]
     Active Substance: ISOSORBIDE
  10. PIROSINIDE [Concomitant]
  11. CARBADIOL [Concomitant]
  12. ASPIRIN. [Concomitant]
     Active Substance: ASPIRIN

REACTIONS (5)
  - Hypertension [None]
  - Pain [None]
  - Pain in extremity [None]
  - Chest discomfort [None]
  - Dyspnoea [None]

NARRATIVE: CASE EVENT DATE: 20140827
